FAERS Safety Report 4780230-X (Version None)
Quarter: 2005Q3

REPORT INFORMATION
  Report Type: 
  Country: None (occurrence: None)
  Receive Date: 20050914
  Receipt Date: 20040728
  Transmission Date: 20060218
  Serious: Yes (Death)
  Sender: FDA-Public Use
  Company Number: 163-20785-04070681

PATIENT
  Age: 87 Year
  Sex: Female

DRUGS (2)
  1. THALOMID [Suspect]
     Indication: MYELODYSPLASTIC SYNDROME
     Dosage: 50 MG, DAILY, ORAL;  100 MG, QD, ORAL
     Route: 048
     Dates: start: 20040506, end: 20040501
  2. THALOMID [Suspect]
     Indication: MYELODYSPLASTIC SYNDROME
     Dosage: 50 MG, DAILY, ORAL;  100 MG, QD, ORAL
     Route: 048
     Dates: start: 20040407, end: 20040505

REACTIONS (2)
  - DEATH [None]
  - RENAL FAILURE [None]
